FAERS Safety Report 21380258 (Version 3)
Quarter: 2023Q1

REPORT INFORMATION
  Report Type: Spontaneous
  Country: BE (occurrence: BE)
  Receive Date: 20220927
  Receipt Date: 20230322
  Transmission Date: 20230418
  Serious: Yes (Other)
  Sender: FDA-Public Use
  Company Number: BE-EMA-DD-20220817-7182781-133208

PATIENT
  Age: 55 Year
  Sex: Male

DRUGS (16)
  1. CITALOPRAM [Interacting]
     Active Substance: CITALOPRAM HYDROBROMIDE
     Indication: Product used for unknown indication
     Dosage: UNK
     Route: 065
     Dates: start: 2012, end: 2012
  2. MYCOPHENOLATE MOFETIL [Interacting]
     Active Substance: MYCOPHENOLATE MOFETIL
     Indication: Immunosuppression
     Dosage: 1000 MILLIGRAM, QD
     Route: 065
  3. TACROLIMUS [Interacting]
     Active Substance: TACROLIMUS
     Indication: Immunosuppression
     Dosage: 1 MILLIGRAM, QD
     Route: 065
  4. FENTANYL [Interacting]
     Active Substance: FENTANYL
     Indication: Thoracic vertebral fracture
     Dosage: UNK
     Route: 065
     Dates: start: 2012, end: 2012
  5. VORICONAZOLE [Suspect]
     Active Substance: VORICONAZOLE
     Indication: Aspergillus infection
     Dosage: 400 MILLIGRAM, QD
     Route: 065
     Dates: start: 2012, end: 2012
  6. POSACONAZOLE [Suspect]
     Active Substance: POSACONAZOLE
     Indication: Aspergilloma
     Dosage: 800 MILLIGRAM, QD
     Route: 065
     Dates: start: 2012, end: 2012
  7. METHYLPREDNISOLONE [Interacting]
     Active Substance: METHYLPREDNISOLONE
     Indication: Immunosuppression
     Dosage: 4 MILLIGRAM, QD
     Route: 065
  8. METHYLPREDNISOLONE [Interacting]
     Active Substance: METHYLPREDNISOLONE
     Indication: Transplant rejection
     Dosage: 500 MILLIGRAM
     Route: 065
     Dates: start: 2012
  9. METHYLPREDNISOLONE [Interacting]
     Active Substance: METHYLPREDNISOLONE
     Dosage: UNK
     Route: 065
  10. ABELCET [Suspect]
     Active Substance: AMPHOTERICIN B\DIMYRISTOYLPHOSPHATIDYLCHOLINE, DL-\DIMYRISTOYLPHOSPHATIDYLGLYCEROL, DL-
     Indication: Aspergilloma
     Dosage: 5 MG/KG, Q3W
     Route: 065
     Dates: start: 2012, end: 2012
  11. SULFAMETHOXAZOLE AND TRIMETHOPRIM [Concomitant]
     Active Substance: SULFAMETHOXAZOLE\TRIMETHOPRIM
     Indication: Pseudomonas infection
     Dosage: UNK, QD
     Route: 065
  12. CIPROFLOXACIN [Concomitant]
     Active Substance: CIPROFLOXACIN
     Indication: Sinusitis bacterial
     Dosage: 1000 MILLIGRAM, QD
     Route: 065
     Dates: start: 2012
  13. METFORMIN [Concomitant]
     Active Substance: METFORMIN HYDROCHLORIDE
     Indication: Glucose tolerance impaired
     Dosage: 1000 MILLIGRAM, QD
     Route: 065
     Dates: start: 2012
  14. ZOLEDRONIC ACID [Concomitant]
     Active Substance: ZOLEDRONIC ACID
     Indication: Thoracic vertebral fracture
     Dosage: UNK
     Route: 065
     Dates: start: 2012
  15. ITRACONAZOLE [Concomitant]
     Active Substance: ITRACONAZOLE
     Indication: Aspergillus infection
     Dosage: UNK
     Route: 065
  16. TAZOBACTAM [Concomitant]
     Active Substance: TAZOBACTAM
     Indication: Pneumonia pseudomonal
     Dosage: UNK, 4X4G
     Route: 065

REACTIONS (6)
  - Drug interaction [Unknown]
  - Nephropathy toxic [Unknown]
  - Abscess jaw [Unknown]
  - Stupor [Unknown]
  - Hyponatraemia [Unknown]
  - Inappropriate antidiuretic hormone secretion [Unknown]

NARRATIVE: CASE EVENT DATE: 20120101
